FAERS Safety Report 9037982 (Version 1)
Quarter: 2013Q1

REPORT INFORMATION
  Report Type: Spontaneous
  Country: US (occurrence: US)
  Receive Date: 20130129
  Receipt Date: 20130129
  Transmission Date: 20140127
  Serious: Yes (Other)
  Sender: FDA-Public Use
  Company Number: US-BAYER-2013-008173

PATIENT
  Age: 90 Year
  Sex: Male
  Weight: 63 kg

DRUGS (9)
  1. DOMEBORO POWDER PACKETS [Suspect]
     Indication: HERPES ZOSTER
     Dosage: UNK, ONCE
     Route: 061
     Dates: start: 20130118, end: 20130118
  2. LISINOPRIL [Concomitant]
  3. METHOTREXATE [Concomitant]
  4. FOLIC ACID [Concomitant]
  5. FISH OIL [Concomitant]
  6. VITAMIN C [Concomitant]
  7. VITAMIN D [Concomitant]
  8. SIMVASTATIN [Concomitant]
  9. SYNTHROID [Concomitant]

REACTIONS (5)
  - Conjunctivitis infective [Recovered/Resolved]
  - Eye irritation [Recovered/Resolved]
  - Eye irritation [Recovered/Resolved]
  - Off label use [None]
  - Accidental exposure to product [None]
